FAERS Safety Report 8838808 (Version 1)
Quarter: 2012Q4

REPORT INFORMATION
  Report Type: 
  Country: ES (occurrence: ES)
  Receive Date: 20121014
  Receipt Date: 20121014
  Transmission Date: 20130627
  Serious: Yes (Other)
  Sender: FDA-Public Use
  Company Number: ES-TEVA-362939ISR

PATIENT
  Age: 52 Year
  Sex: Female

DRUGS (1)
  1. ENALAPRIL RATIOPHARM 10 MG COMPRIMIDOS [Suspect]
     Indication: HYPERTENSION
     Dosage: 10 Milligram Daily;
     Route: 048
     Dates: start: 20110105, end: 20120522

REACTIONS (4)
  - Dyspnoea [Unknown]
  - Malaise [Unknown]
  - Cough [Unknown]
  - Migraine [Unknown]
